FAERS Safety Report 6903696-5 (Version None)
Quarter: 2010Q3

REPORT INFORMATION
  Report Type: 
  Country: None (occurrence: None)
  Receive Date: 20100803
  Receipt Date: 20081117
  Transmission Date: 20110219
  Serious: No
  Sender: FDA-Public Use
  Company Number: US-PFIZER INC-2008097409

PATIENT
  Sex: Male
  Weight: 80.29 kg

DRUGS (9)
  1. LYRICA [Suspect]
     Indication: DEPRESSION
     Dates: start: 20070101
  2. LYRICA [Suspect]
     Indication: ANXIETY
  3. XANAX [Concomitant]
  4. CRESTOR [Concomitant]
  5. MODURETIC 5-50 [Concomitant]
  6. LOTENSIN [Concomitant]
  7. NIASPAN [Concomitant]
  8. WELLBUTRIN [Concomitant]
  9. PRILOSEC [Concomitant]

REACTIONS (3)
  - BLOOD FIBRINOGEN INCREASED [None]
  - LIPOPROTEIN (A) INCREASED [None]
  - WEIGHT INCREASED [None]
